FAERS Safety Report 15837734 (Version 1)
Quarter: 2019Q1

REPORT INFORMATION
  Report Type: Spontaneous
  Country: US (occurrence: US)
  Receive Date: 20190117
  Receipt Date: 20190117
  Transmission Date: 20190417
  Serious: No
  Sender: FDA-Public Use
  Company Number: US-SA-2019SA011143

PATIENT

DRUGS (1)
  1. TOUJEO [Suspect]
     Active Substance: INSULIN GLARGINE
     Dosage: 70 U, QD (AT 4 PM)
     Route: 065

REACTIONS (3)
  - Visual impairment [Unknown]
  - Product dose omission [Unknown]
  - Product storage error [Unknown]
